FAERS Safety Report 21382480 (Version 1)
Quarter: 2022Q3

REPORT INFORMATION
  Report Type: Spontaneous
  Country: US (occurrence: US)
  Receive Date: 20220927
  Receipt Date: 20220927
  Transmission Date: 20221027
  Serious: No
  Sender: FDA-Public Use
  Company Number: US-SUNOVION-2022SUN002710AA

PATIENT
  Sex: Female

DRUGS (3)
  1. LATUDA [Suspect]
     Active Substance: LURASIDONE HYDROCHLORIDE
     Indication: Bipolar disorder
     Dosage: 40 MG
     Route: 048
  2. RISPERIDONE [Suspect]
     Active Substance: RISPERIDONE
     Dosage: UNK
     Route: 065
  3. RISPERIDONE [Suspect]
     Active Substance: RISPERIDONE
     Dosage: UNK
     Route: 065

REACTIONS (1)
  - Psychiatric decompensation [Unknown]
